FAERS Safety Report 8762409 (Version 1)
Quarter: 2012Q4

REPORT INFORMATION
  Report Type: 
  Country: US (occurrence: US)
  Receive Date: 20120904
  Receipt Date: 20120904
  Transmission Date: 20130627
  Serious: No
  Sender: FDA-Public Use
  Company Number: US-PFIZER INC-2012211734

PATIENT
  Sex: Female

DRUGS (3)
  1. ESTRING [Suspect]
     Indication: VULVOVAGINAL DRYNESS
     Dosage: UNK
     Route: 067
     Dates: start: 20120822, end: 20120824
  2. LAMICTAL [Suspect]
     Indication: BIPOLAR DISORDER
     Dosage: 200 mg, 1x/day
     Dates: start: 2005
  3. SYNTHROID [Concomitant]
     Indication: HYPOTHYROIDISM
     Dosage: 75 ug, 1x/day
     Dates: start: 2007

REACTIONS (5)
  - Product quality issue [Unknown]
  - Poor quality drug administered [Unknown]
  - Drug dose omission [Unknown]
  - Blood cholesterol abnormal [Unknown]
  - Depression [Not Recovered/Not Resolved]
